FAERS Safety Report 4375657-4 (Version None)
Quarter: 2004Q2

REPORT INFORMATION
  Report Type: 
  Country: None (occurrence: None)
  Receive Date: 20040610
  Receipt Date: 20040527
  Transmission Date: 20050107
  Serious: Yes (Hospitalization)
  Sender: FDA-Public Use
  Company Number: JP-GLAXOSMITHKLINE-B0334218A

PATIENT
  Age: 41 Year
  Sex: Female

DRUGS (2)
  1. VALTREX [Suspect]
     Indication: HERPES VIRUS INFECTION
     Dosage: 1000MG TWICE PER DAY
     Route: 048
     Dates: start: 20040507, end: 20040514
  2. PREDONINE [Concomitant]
     Dosage: 25MG PER DAY
     Route: 065

REACTIONS (2)
  - DIZZINESS [None]
  - HEADACHE [None]
